FAERS Safety Report 5313003-X (Version None)
Quarter: 2007Q2

REPORT INFORMATION
  Report Type: 
  Country: None (occurrence: None)
  Receive Date: 20070424
  Receipt Date: 20070409
  Transmission Date: 20071010
  Serious: Yes (Hospitalization, Other)
  Sender: FDA-Public Use
  Company Number: M-07-0285

PATIENT
  Sex: Male
  Weight: 68.9467 kg

DRUGS (11)
  1. AMIODARONE HCL [Suspect]
     Dosage: 200 MG, 2 IN 1 DAY, PO
     Route: 048
  2. XANAX [Suspect]
     Indication: SLEEP DISORDER
     Dosage: 0.5 MG, HS, ORAL
     Route: 048
  3. PLACEBO [Suspect]
     Indication: COLORECTAL CANCER METASTATIC
     Dosage: 2 IN 1 DAY, PO
     Route: 048
     Dates: start: 20030811
  4. IRINOTECAN HCL [Suspect]
     Indication: COLORECTAL CANCER METASTATIC
     Dosage: 125MG/M2, DAY 1+8, IV
     Route: 042
     Dates: start: 20030811, end: 20030818
  5. FLUOROURACIL [Suspect]
     Indication: COLORECTAL CANCER METASTATIC
     Dosage: 500MG/M2, DAY 1+8, IV
     Route: 042
     Dates: start: 20030811, end: 20030818
  6. LEUCOVORIN CALCIUM [Suspect]
     Indication: COLORECTAL CANCER METASTATIC
     Dosage: 20MG/M2, DAY 1+8, IV
     Route: 042
     Dates: start: 20030811, end: 20030818
  7. TOPROL-XL [Suspect]
     Indication: HYPERTENSION
     Dosage: 50 MG, 1 IN 1 DAY, PO
     Route: 048
  8. ZETIA [Suspect]
     Indication: BLOOD CHOLESTEROL
     Dosage: 10 MG, 1 IN 1 DAY, PO
     Route: 048
  9. PROTONIX [Suspect]
     Dosage: 40 MG, 1 IN 1 DAY, PO
     Route: 048
  10. CIPROFLOXACIN [Suspect]
     Indication: PROPHYLAXIS
     Dosage: 250MG, 1 IN 1 DAY, PO
     Route: 048
  11. ACETYLSALICYLIC ACID SRT [Suspect]
     Indication: PROPHYLAXIS
     Dosage: 81 MG, 1 IN 1 DAY, PO
     Route: 048
     Dates: start: 19860101, end: 20030810

REACTIONS (2)
  - ANGINA PECTORIS [None]
  - INTESTINAL OBSTRUCTION [None]
